FAERS Safety Report 11498274 (Version 1)
Quarter: 2015Q3

REPORT INFORMATION
  Report Type: Spontaneous
  Country: TR (occurrence: TR)
  Receive Date: 20150911
  Receipt Date: 20150911
  Transmission Date: 20151125
  Serious: Yes (Other)
  Sender: FDA-Public Use
  Company Number: TR-ACTAVIS-2015-19360

PATIENT
  Age: 43 Year
  Sex: Male

DRUGS (6)
  1. PACLITAXEL (UNKNOWN) [Suspect]
     Active Substance: PACLITAXEL
     Indication: SEMINOMA
     Dosage: 250 MG/M2, CYCLICAL
     Route: 065
  2. GRANULOCYTE COLONY STIMULATING FACTOR [Concomitant]
     Active Substance: GRANULOCYTE COLONY-STIMULATING FACTOR NOS
     Indication: PROPHYLAXIS
     Dosage: 480 ?G, CYCLICAL (ON DAYS 6-12 OF EACH CYCLE)
     Route: 058
  3. CISPLATIN (UNKNOWN) [Suspect]
     Active Substance: CISPLATIN
     Dosage: 20 MG/M2, CYCLICAL (ON DAYS 1-5, EVERY 3 WEEKS), 4 CYCLES
     Route: 042
  4. IFOSFAMIDE. [Suspect]
     Active Substance: IFOSFAMIDE
     Indication: SEMINOMA
     Dosage: 1500 MG/M2, CYCLICAL (ON DAYS 2-5, EVERY 21 DAYS)
     Route: 065
  5. CISPLATIN (UNKNOWN) [Suspect]
     Active Substance: CISPLATIN
     Indication: SEMINOMA
     Dosage: 25 MG/M2, CYCLICAL (ON DAYS 2-5, EVERY 21 DAYS)
     Route: 065
  6. MESNA. [Concomitant]
     Active Substance: MESNA
     Indication: CHEMOTHERAPY
     Dosage: 1500 MG/M2, CYCLICAL (ON DAYS 2-5, EVERY 21 DAYS)
     Route: 065

REACTIONS (2)
  - Febrile neutropenia [Unknown]
  - Thrombotic thrombocytopenic purpura [Recovered/Resolved]
